FAERS Safety Report 7258803-4 (Version None)
Quarter: 2011Q1

REPORT INFORMATION
  Report Type: 
  Country: None (occurrence: None)
  Receive Date: 20110129
  Receipt Date: 20100528
  Transmission Date: 20110831
  Serious: No
  Sender: FDA-Public Use
  Company Number: US-ABBOTT-10P-163-0647620-00

PATIENT
  Age: 37 Year
  Sex: Male

DRUGS (5)
  1. HUMIRA [Suspect]
     Indication: RHEUMATOID ARTHRITIS
     Dates: start: 20100301
  2. METHOTREXATE [Concomitant]
     Indication: RHEUMATOID ARTHRITIS
     Dosage: 10 MG ON MONDAYS AND 10 MG ON TUESDAYS
     Route: 048
  3. PROPOXYPHENE NAPSYLATE AND ACETAMINOPHEN [Concomitant]
     Indication: PAIN
     Dosage: EVERY 6 HOURS
     Route: 048
  4. FOLIC ACID [Concomitant]
     Indication: IMMUNE SYSTEM DISORDER
     Route: 048
  5. TRAZODONE [Concomitant]
     Indication: ANXIETY
     Dosage: 50-100MG ONCE A DAY

REACTIONS (1)
  - INJECTION SITE HAEMATOMA [None]
